FAERS Safety Report 10407117 (Version 6)
Quarter: 2014Q3

REPORT INFORMATION
  Report Type: Spontaneous
  Country: US (occurrence: US)
  Receive Date: 20140825
  Receipt Date: 20140918
  Transmission Date: 20150326
  Serious: Yes (Hospitalization)
  Sender: FDA-Public Use
  Company Number: US-GLAXOSMITHKLINE-A1085328A

PATIENT
  Sex: Female

DRUGS (15)
  1. PHENOBARBITAL. [Concomitant]
     Active Substance: PHENOBARBITAL
  2. SYNTHROID [Concomitant]
     Active Substance: LEVOTHYROXINE SODIUM
  3. PRILOSEC [Concomitant]
     Active Substance: OMEPRAZOLE MAGNESIUM
  4. CLONAZEPAM. [Concomitant]
     Active Substance: CLONAZEPAM
  5. LEVOTHYROXINE [Concomitant]
     Active Substance: LEVOTHYROXINE
  6. VENTOLIN [Concomitant]
     Active Substance: ALBUTEROL SULFATE
  7. DILTIAZEM [Concomitant]
     Active Substance: DILTIAZEM
  8. URSODIOL. [Concomitant]
     Active Substance: URSODIOL
  9. UNSPECIFIED MEDICATION [Concomitant]
     Active Substance: UNSPECIFIED INGREDIENT
     Indication: LACRIMAL DISORDER
  10. ADVAIR HFA [Suspect]
     Active Substance: FLUTICASONE PROPIONATE\SALMETEROL XINAFOATE
     Indication: INTERSTITIAL LUNG DISEASE
     Route: 065
  11. IRON [Concomitant]
     Active Substance: IRON
  12. RESTASIS [Concomitant]
     Active Substance: CYCLOSPORINE
  13. CELEXA [Concomitant]
     Active Substance: CITALOPRAM HYDROBROMIDE
  14. ADVAIR HFA [Suspect]
     Active Substance: FLUTICASONE PROPIONATE\SALMETEROL XINAFOATE
     Indication: INTERSTITIAL LUNG DISEASE
     Dosage: 1PUFF TWICE PER DAY
     Dates: start: 1990
  15. UNSPECIFIED INHALER [Concomitant]
     Active Substance: UNSPECIFIED INGREDIENT

REACTIONS (14)
  - Immunodeficiency [Not Recovered/Not Resolved]
  - Haemorrhage [Unknown]
  - Haemorrhoidal haemorrhage [Unknown]
  - Haematochezia [Not Recovered/Not Resolved]
  - Dehydration [Recovered/Resolved]
  - Fall [Unknown]
  - Suture insertion [Unknown]
  - Lacrimal disorder [Unknown]
  - Investigation [Unknown]
  - Diverticulitis [Not Recovered/Not Resolved]
  - Haemorrhoids [Not Recovered/Not Resolved]
  - Laceration [Unknown]
  - Ill-defined disorder [Not Recovered/Not Resolved]
  - Diarrhoea [Recovered/Resolved]

NARRATIVE: CASE EVENT DATE: 2000
